FAERS Safety Report 9311847 (Version 1)
Quarter: 2013Q2

REPORT INFORMATION
  Report Type: Report from Study
  Country: RU (occurrence: RU)
  Receive Date: 20130528
  Receipt Date: 20130528
  Transmission Date: 20140414
  Serious: Yes (Other)
  Sender: FDA-Public Use
  Company Number: PHHY2013RU053129

PATIENT
  Age: 64 Year
  Sex: Female

DRUGS (4)
  1. ACLASTA [Suspect]
     Dosage: UNK
     Route: 042
  2. ACLASTA [Suspect]
     Dosage: UNK
     Route: 042
  3. ACLASTA [Suspect]
     Dosage: UNK
     Route: 042
  4. ACLASTA [Suspect]
     Dosage: UNK
     Route: 042
     Dates: start: 20130207

REACTIONS (2)
  - Thoracic vertebral fracture [Unknown]
  - Bone density abnormal [Unknown]
